FAERS Safety Report 8814259 (Version 2)
Quarter: 2013Q1

REPORT INFORMATION
  Report Type: Spontaneous
  Country: DK (occurrence: None)
  Receive Date: 20120925
  Receipt Date: 20121109
  Transmission Date: 20140127
  Serious: Yes (Other)
  Sender: FDA-Public Use
  Company Number: DSA_59783_2012

PATIENT
  Age: 78 Year
  Sex: Male

DRUGS (2)
  1. FLAGYL [Suspect]
     Indication: TOOTH ABSCESS
     Route: 048
     Dates: start: 20120825, end: 20120829
  2. AZITHROMYCIN [Concomitant]

REACTIONS (4)
  - Food aversion [None]
  - Angioedema [None]
  - Chromaturia [None]
  - Headache [None]
